FAERS Safety Report 5126956-X (Version None)
Quarter: 2006Q4

REPORT INFORMATION
  Report Type: 
  Country: None (occurrence: None)
  Receive Date: 20061013
  Receipt Date: 20061005
  Transmission Date: 20070319
  Serious: Yes (Other)
  Sender: FDA-Public Use
  Company Number: US-JNJFOC-20060803747

PATIENT
  Age: 42 Year
  Sex: Male
  Weight: 68.04 kg

DRUGS (2)
  1. EXTRA STRENGTH TYLENOL [Suspect]
  2. EXTRA STRENGTH TYLENOL [Suspect]
     Indication: HEADACHE

REACTIONS (2)
  - COELIAC DISEASE [None]
  - COORDINATION ABNORMAL [None]
